FAERS Safety Report 6899606-X (Version None)
Quarter: 2010Q3

REPORT INFORMATION
  Report Type: 
  Country: None (occurrence: None)
  Receive Date: 20100729
  Receipt Date: 20100715
  Transmission Date: 20110219
  Serious: Yes (Death, Life-Threatening, Hospitalization)
  Sender: FDA-Public Use
  Company Number: A-US2010-37113

PATIENT
  Age: 42 Year
  Sex: Female

DRUGS (3)
  1. TRACLEER [Suspect]
     Indication: PULMONARY ARTERIAL HYPERTENSION
     Dosage: ORAL
     Route: 048
     Dates: start: 20080707
  2. REVATIO [Concomitant]
  3. COUMADIN [Concomitant]

REACTIONS (4)
  - GASTROOESOPHAGEAL REFLUX DISEASE [None]
  - INTERSTITIAL LUNG DISEASE [None]
  - ISCHAEMIC HEPATITIS [None]
  - PULMONARY HYPERTENSION [None]
